FAERS Safety Report 20706022 (Version 2)
Quarter: 2022Q3

REPORT INFORMATION
  Report Type: Other
  Country: NL (occurrence: None)
  Receive Date: 20220413
  Receipt Date: 20220914
  Transmission Date: 20221027
  Serious: No
  Sender: FDA-Public Use
  Company Number: NL-ROCHE-3073469

PATIENT
  Age: 49 Year
  Sex: Female

DRUGS (5)
  1. OCRELIZUMAB [Suspect]
     Active Substance: OCRELIZUMAB
     Indication: Relapsing-remitting multiple sclerosis
     Route: 042
     Dates: start: 20190308
  2. SOLU-MEDROL [Concomitant]
     Active Substance: METHYLPREDNISOLONE SODIUM SUCCINATE
     Route: 042
     Dates: start: 20210903, end: 20210903
  3. CLEMASTINE [Concomitant]
     Active Substance: CLEMASTINE
     Route: 048
     Dates: start: 20210903, end: 20210903
  4. ACETAMINOPHEN [Concomitant]
     Active Substance: ACETAMINOPHEN
     Route: 048
     Dates: start: 20210903, end: 20210903
  5. COVID-19 VACCINE [Concomitant]
     Indication: Prophylaxis
     Dosage: HAS HAD BOTH VACCINES, DATA IS UNKNOWN, SEE RAPP HIX 16/SEP/2021
     Route: 030
     Dates: start: 20210916, end: 20210916

REACTIONS (3)
  - Tachycardia [Recovered/Resolved]
  - Dizziness [Recovered/Resolved]
  - COVID-19 [Recovered/Resolved]

NARRATIVE: CASE EVENT DATE: 20210916
